FAERS Safety Report 17217761 (Version 1)
Quarter: 2019Q4

REPORT INFORMATION
  Report Type: Spontaneous
  Country: US (occurrence: US)
  Receive Date: 20191207
  Receipt Date: 20191207
  Transmission Date: 20200122
  Serious: No
  Sender: FDA-Public Use
  Company Number: None

PATIENT
  Sex: Female

DRUGS (1)
  1. NEXAVAR [Suspect]
     Active Substance: SORAFENIB
     Indication: THYROID CANCER
     Route: 048
     Dates: start: 20191111

REACTIONS (6)
  - Blister [None]
  - Back pain [None]
  - Headache [None]
  - Chest pain [None]
  - Rash [None]
  - Epistaxis [None]
